FAERS Safety Report 8413323-6 (Version None)
Quarter: 2012Q2

REPORT INFORMATION
  Report Type: 
  Country: None (occurrence: None)
  Receive Date: 20120605
  Receipt Date: 20120525
  Transmission Date: 20120825
  Serious: Yes (Other)
  Sender: FDA-Public Use
  Company Number: PT-ASTRAZENECA-2012SE36924

PATIENT
  Age: 52 Year
  Sex: Female
  Weight: 67.9 kg

DRUGS (3)
  1. ROSUVASTATIN CALCIUM [Suspect]
     Indication: DYSLIPIDAEMIA
     Route: 048
     Dates: start: 20110601, end: 20111101
  2. TANDIX L P [Concomitant]
     Indication: HYPERTENSION
     Route: 048
     Dates: start: 20090601, end: 20111101
  3. BECOZYME [Concomitant]
     Indication: VITAMIN B COMPLEX DEFICIENCY
     Route: 048
     Dates: start: 20110906, end: 20111003

REACTIONS (8)
  - DYSPNOEA [None]
  - LIP SWELLING [None]
  - INSOMNIA [None]
  - MALAISE [None]
  - SWOLLEN TONGUE [None]
  - DECREASED APPETITE [None]
  - DYSPHAGIA [None]
  - DIZZINESS [None]
